FAERS Safety Report 16514958 (Version 3)
Quarter: 2019Q3

REPORT INFORMATION
  Report Type: Spontaneous
  Country: US (occurrence: US)
  Receive Date: 20190702
  Receipt Date: 20190717
  Transmission Date: 20191004
  Serious: No
  Sender: FDA-Public Use
  Company Number: US-JNJFOC-20190636470

PATIENT
  Age: 63 Year
  Sex: Male

DRUGS (2)
  1. IMBRUVICA [Suspect]
     Active Substance: IBRUTINIB
     Indication: MARGINAL ZONE LYMPHOMA
     Dosage: 420 MG, QD
     Route: 048
     Dates: start: 2019
  2. IMBRUVICA [Suspect]
     Active Substance: IBRUTINIB
     Dosage: 420 MG, QD
     Route: 048
     Dates: start: 20190122

REACTIONS (4)
  - Dysuria [Unknown]
  - Urinary tract infection [Recovering/Resolving]
  - Prostatitis [Not Recovered/Not Resolved]
  - Prostate infection [Recovering/Resolving]

NARRATIVE: CASE EVENT DATE: 20190523
